FAERS Safety Report 24014247 (Version 1)
Quarter: 2024Q2

REPORT INFORMATION
  Report Type: Spontaneous
  Country: AU (occurrence: AU)
  Receive Date: 20240626
  Receipt Date: 20240626
  Transmission Date: 20240716
  Serious: Yes (Other)
  Sender: FDA-Public Use
  Company Number: AU-BRISTOL-MYERS SQUIBB COMPANY-2024-098446

PATIENT
  Age: 71 Year
  Sex: Female

DRUGS (4)
  1. AZACITIDINE [Suspect]
     Active Substance: AZACITIDINE
     Indication: Acute myeloid leukaemia
  2. VENETOCLAX [Suspect]
     Active Substance: VENETOCLAX
     Indication: Acute myeloid leukaemia
     Dosage: GIVEN FOR 21 DAYS IN CYCLE ONE
     Route: 048
  3. SIMVASTATIN [Concomitant]
     Active Substance: SIMVASTATIN
     Indication: Product used for unknown indication
  4. POSACONAZOLE [Concomitant]
     Active Substance: POSACONAZOLE
     Indication: Prophylaxis

REACTIONS (8)
  - Viral infection [Unknown]
  - Pyrexia [Unknown]
  - Liver injury [Recovered/Resolved]
  - Myositis [Recovering/Resolving]
  - Acute kidney injury [Unknown]
  - Renal tubular necrosis [Unknown]
  - Necrotising myositis [Unknown]
  - Muscle atrophy [Recovering/Resolving]
